FAERS Safety Report 14242021 (Version 4)
Quarter: 2020Q1

REPORT INFORMATION
  Report Type: Report from Study
  Country: DZ (occurrence: DZ)
  Receive Date: 20171201
  Receipt Date: 20200205
  Transmission Date: 20200409
  Serious: Yes (Death)
  Sender: FDA-Public Use
  Company Number: DZ-ROCHE-2031731

PATIENT
  Age: 69 Year
  Sex: Male
  Weight: 42 kg

DRUGS (2)
  1. RITUXIMAB. [Suspect]
     Active Substance: RITUXIMAB
     Indication: NON-HODGKIN^S LYMPHOMA
     Route: 058
  2. RITUXIMAB. [Suspect]
     Active Substance: RITUXIMAB
     Dosage: THIS WAS THE MOST RECENT DOSE PRIOR TO SAE
     Route: 058
     Dates: start: 20160427, end: 20160517

REACTIONS (2)
  - Dehydration [Fatal]
  - Decreased appetite [Fatal]

NARRATIVE: CASE EVENT DATE: 20160427
